FAERS Safety Report 11892844 (Version 1)
Quarter: 2016Q1

REPORT INFORMATION
  Report Type: Spontaneous
  Country: US (occurrence: US)
  Receive Date: 20160106
  Receipt Date: 20160106
  Transmission Date: 20160526
  Serious: Yes (Hospitalization)
  Sender: FDA-Public Use
  Company Number: US-SA-2016SA001565

PATIENT
  Age: 67 Year
  Sex: Female

DRUGS (10)
  1. PRIMIDONE. [Concomitant]
     Active Substance: PRIMIDONE
  2. DEXILANT [Concomitant]
     Active Substance: DEXLANSOPRAZOLE
  3. AUBAGIO [Suspect]
     Active Substance: TERIFLUNOMIDE
     Indication: MULTIPLE SCLEROSIS
     Route: 048
  4. ADDERALL [Concomitant]
     Active Substance: AMPHETAMINE ASPARTATE\AMPHETAMINE SULFATE\DEXTROAMPHETAMINE SACCHARATE\DEXTROAMPHETAMINE SULFATE
  5. METHYLTESTOSTERONE [Concomitant]
     Active Substance: METHYLTESTOSTERONE
  6. AMBIEN [Concomitant]
     Active Substance: ZOLPIDEM TARTRATE
  7. NORCO [Concomitant]
     Active Substance: ACETAMINOPHEN\HYDROCODONE BITARTRATE
  8. ATENOLOL. [Concomitant]
     Active Substance: ATENOLOL
  9. KEPPRA [Concomitant]
     Active Substance: LEVETIRACETAM
  10. CYMBALTA [Concomitant]
     Active Substance: DULOXETINE HYDROCHLORIDE

REACTIONS (2)
  - Rectocele repair [Unknown]
  - Cystocele repair [Unknown]

NARRATIVE: CASE EVENT DATE: 20151217
